FAERS Safety Report 21982119 (Version 4)
Quarter: 2023Q2

REPORT INFORMATION
  Report Type: Spontaneous
  Country: IE (occurrence: IE)
  Receive Date: 20230213
  Receipt Date: 20230523
  Transmission Date: 20230722
  Serious: Yes (Life-Threatening, Hospitalization, Other)
  Sender: FDA-Public Use
  Company Number: IE-SUN PHARMACEUTICAL INDUSTRIES LTD-2023R1-377381

PATIENT
  Sex: Female

DRUGS (6)
  1. LEVETIRACETAM [Suspect]
     Active Substance: LEVETIRACETAM
     Indication: Dyskinesia
     Dosage: 60 MILLIGRAM/KILOGRAM, 2 DOSES
     Route: 065
  2. DULOXETINE [Suspect]
     Active Substance: DULOXETINE
     Indication: Fibromyalgia
     Dosage: 60 MILLIGRAM, DAILY
     Route: 064
  3. LORAZEPAM [Suspect]
     Active Substance: LORAZEPAM
     Indication: Dyskinesia
     Dosage: 0.1 MILLIGRAM/KILOGRAM, 2 DOSES
     Route: 065
  4. PHENOBARBITAL [Suspect]
     Active Substance: PHENOBARBITAL
     Indication: Dyskinesia
     Dosage: 40 MILLIGRAM/KILOGRAM, 2 DOSES
     Route: 065
  5. FENTANYL [Concomitant]
     Active Substance: FENTANYL
     Indication: Dyskinesia
     Dosage: 2 MICROGRAM/KILOGRAM
     Route: 065
  6. ATROPINE [Concomitant]
     Active Substance: ATROPINE
     Indication: Dyskinesia
     Dosage: 0.01 MILLIGRAM/KILOGRAM
     Route: 065

REACTIONS (6)
  - Respiratory disorder neonatal [Not Recovered/Not Resolved]
  - Dyskinesia [Unknown]
  - Apnoea [Unknown]
  - Foetal exposure during pregnancy [Unknown]
  - Hypotonia [Not Recovered/Not Resolved]
  - Premature baby [Unknown]
